FAERS Safety Report 26011009 (Version 1)
Quarter: 2025Q4

REPORT INFORMATION
  Report Type: Spontaneous
  Country: US (occurrence: US)
  Receive Date: 20251107
  Receipt Date: 20251107
  Transmission Date: 20260117
  Serious: No
  Sender: ROCHE
  Company Number: US-ROCHE-10000422746

PATIENT
  Age: 31 Year
  Sex: Female
  Weight: 82.1 kg

DRUGS (2)
  1. XOLAIR [Suspect]
     Active Substance: OMALIZUMAB
     Indication: Angioedema
     Dosage: EVERY 2 WEEKS
     Route: 058
  2. XOLAIR [Suspect]
     Active Substance: OMALIZUMAB

REACTIONS (6)
  - Device mechanical issue [Unknown]
  - Device malfunction [Unknown]
  - Drug delivery system malfunction [Unknown]
  - Off label use [Unknown]
  - No adverse event [Unknown]
  - Product dose omission issue [Unknown]

NARRATIVE: CASE EVENT DATE: 20251025
